FAERS Safety Report 6776211-7 (Version None)
Quarter: 2010Q2

REPORT INFORMATION
  Report Type: 
  Country: None (occurrence: None)
  Receive Date: 20100617
  Receipt Date: 20100610
  Transmission Date: 20101027
  Serious: Yes (Other)
  Sender: FDA-Public Use
  Company Number: CA-AMGEN-QUU414953

PATIENT
  Sex: Female
  Weight: 66.6 kg

DRUGS (16)
  1. NEUPOGEN [Suspect]
     Indication: CHEMOTHERAPY
     Route: 058
  2. DOCUSATE [Concomitant]
  3. ADRIAMYCIN PFS [Concomitant]
  4. RITUXAN [Concomitant]
  5. ZOFRAN [Concomitant]
  6. PROCYTOX [Concomitant]
  7. VINCRISTINE [Concomitant]
  8. PREDNISONE [Concomitant]
  9. PRAVACHOL [Concomitant]
  10. ALLOPURINOL [Concomitant]
  11. NEXIUM [Concomitant]
  12. NORVASC [Concomitant]
  13. COZAAR [Concomitant]
  14. DIABETA [Concomitant]
  15. DECADRON [Concomitant]
  16. SENNOSIDE [Concomitant]

REACTIONS (3)
  - DIZZINESS [None]
  - NAUSEA [None]
  - VOMITING [None]
